FAERS Safety Report 25728022 (Version 1)
Quarter: 2025Q3

REPORT INFORMATION
  Report Type: Spontaneous
  Country: US (occurrence: None)
  Receive Date: 20250826
  Receipt Date: 20250826
  Transmission Date: 20251020
  Serious: Yes (Other)
  Sender: FDA-CTU
  Company Number: None

PATIENT
  Sex: Male

DRUGS (8)
  1. LENALIDOMIDE [Suspect]
     Active Substance: LENALIDOMIDE
     Indication: Plasmacytoma
     Route: 048
     Dates: start: 20250808
  2. ASPIRIN [Concomitant]
     Active Substance: ASPIRIN
  3. CALCIUM PLUS [Concomitant]
  4. MIRALIAX [Concomitant]
  5. MIRTAZAPINE [Concomitant]
     Active Substance: MIRTAZAPINE
  6. MULTI VITAMI [Concomitant]
  7. SILDENAFIL [Concomitant]
     Active Substance: SILDENAFIL
  8. ZINC [Concomitant]
     Active Substance: ZINC

REACTIONS (1)
  - Pulmonary embolism [None]
